FAERS Safety Report 6987387-0 (Version None)
Quarter: 2010Q3

REPORT INFORMATION
  Report Type: 
  Country: None (occurrence: None)
  Receive Date: 20100913
  Receipt Date: 20100907
  Transmission Date: 20110219
  Serious: Yes (Life-Threatening, Other)
  Sender: FDA-Public Use
  Company Number: 2010AP001859

PATIENT
  Age: 36 Year
  Sex: Male

DRUGS (1)
  1. CITALOPRAM HYDROBROMIDE [Suspect]
     Indication: PANIC DISORDER
     Dosage: 20 MG, 30 MG, 60 MG

REACTIONS (8)
  - CONDITION AGGRAVATED [None]
  - DIPLOPIA [None]
  - DRUG INEFFECTIVE [None]
  - FRONTAL LOBE EPILEPSY [None]
  - LOSS OF LIBIDO [None]
  - PANIC DISORDER [None]
  - PARAESTHESIA [None]
  - RASH [None]
